FAERS Safety Report 13422895 (Version 1)
Quarter: 2017Q2

REPORT INFORMATION
  Report Type: Spontaneous
  Country: None (occurrence: US)
  Receive Date: 20170410
  Receipt Date: 20170410
  Transmission Date: 20170830
  Serious: Yes (Hospitalization)
  Sender: FDA-Public Use
  Company Number: None

PATIENT
  Age: 49 Year
  Sex: Male
  Weight: 113.9 kg

DRUGS (5)
  1. METHOTREXATE. [Suspect]
     Active Substance: METHOTREXATE
     Dates: end: 20170320
  2. CYTARABINE. [Suspect]
     Active Substance: CYTARABINE
     Dates: end: 20170323
  3. CYCLOPHOSPHAMIDE. [Suspect]
     Active Substance: CYCLOPHOSPHAMIDE
     Dates: end: 20170313
  4. MERCAPTOPURINE. [Suspect]
     Active Substance: MERCAPTOPURINE
     Dates: end: 20170326
  5. ONCASPAR [Suspect]
     Active Substance: PEGASPARGASE
     Dates: end: 20170327

REACTIONS (7)
  - Rash [None]
  - Rash pruritic [None]
  - Cellulitis [None]
  - Neutropenia [None]
  - Transfusion reaction [None]
  - Body temperature increased [None]
  - Chills [None]

NARRATIVE: CASE EVENT DATE: 20170331
